FAERS Safety Report 5201511-1 (Version None)
Quarter: 2007Q1

REPORT INFORMATION
  Report Type: 
  Country: None (occurrence: None)
  Receive Date: 20070104
  Receipt Date: 20061220
  Transmission Date: 20070707
  Serious: Yes (Disabling)
  Sender: FDA-Public Use
  Company Number: S06-SWI-05427-01

PATIENT
  Age: 71 Year
  Sex: Male
  Weight: 83 kg

DRUGS (4)
  1. CIPRALEX (ESCITALOPRAM) [Suspect]
     Indication: DEPRESSION
     Dosage: 10 MG QD PO
     Route: 048
     Dates: start: 20050601
  2. ZOCOR [Concomitant]
  3. NEBIVOLOL HCL [Concomitant]
  4. ASPIRIN [Concomitant]

REACTIONS (4)
  - CATARACT [None]
  - DRUG INEFFECTIVE [None]
  - DRY EYE [None]
  - VISUAL DISTURBANCE [None]
